FAERS Safety Report 5898055-0 (Version None)
Quarter: 2008Q3

REPORT INFORMATION
  Report Type: 
  Country: None (occurrence: None)
  Receive Date: 20080904
  Receipt Date: 20071017
  Transmission Date: 20090109
  Serious: Yes (Hospitalization, Other)
  Sender: FDA-Public Use
  Company Number: 200712334

PATIENT
  Age: 57 Year
  Sex: Male

DRUGS (2)
  1. CARIMUNE NF [Suspect]
     Indication: THROMBOTIC THROMBOCYTOPENIC PURPURA
     Dosage: 400 MG/KG QD IV
     Route: 042
     Dates: start: 20071010, end: 20071012
  2. LASIX [Concomitant]

REACTIONS (1)
  - RENAL FAILURE ACUTE [None]
